FAERS Safety Report 14431859 (Version 2)
Quarter: 2018Q1

REPORT INFORMATION
  Report Type: Report from Study
  Country: US (occurrence: US)
  Receive Date: 20180124
  Receipt Date: 20180316
  Transmission Date: 20180509
  Serious: Yes (Death, Other)
  Sender: FDA-Public Use
  Company Number: US-REGENERON PHARMACEUTICALS, INC.-2018-11214

PATIENT

DRUGS (1)
  1. EYLEA [Suspect]
     Active Substance: AFLIBERCEPT
     Indication: NEOVASCULAR AGE-RELATED MACULAR DEGENERATION
     Dosage: 2 UNITS/ 0.05 ML, LEFT EYE
     Route: 031
     Dates: start: 20171112, end: 20171112

REACTIONS (1)
  - Death [Fatal]

NARRATIVE: CASE EVENT DATE: 2018
